FAERS Safety Report 10295014 (Version 1)
Quarter: 2014Q3

REPORT INFORMATION
  Report Type: Spontaneous
  Country: US (occurrence: US)
  Receive Date: 20140710
  Receipt Date: 20140710
  Transmission Date: 20150326
  Serious: No
  Sender: FDA-Public Use
  Company Number: US-PURDUE-USA-2014-0112216

PATIENT
  Sex: Female

DRUGS (1)
  1. BUTRANS [Suspect]
     Active Substance: BUPRENORPHINE
     Indication: BACK PAIN
     Dosage: 20 MCG/HR, WEEKLY
     Route: 062
     Dates: start: 2013

REACTIONS (7)
  - Application site pruritus [Unknown]
  - Peripheral swelling [Unknown]
  - Irritable bowel syndrome [Unknown]
  - Application site pain [Unknown]
  - Drug administered at inappropriate site [Unknown]
  - Pain in extremity [Unknown]
  - Application site rash [Unknown]
